FAERS Safety Report 4688398-0 (Version None)
Quarter: 2005Q2

REPORT INFORMATION
  Report Type: 
  Country: None (occurrence: None)
  Receive Date: 20050610
  Receipt Date: 20050610
  Transmission Date: 20051028
  Serious: Yes (Other)
  Sender: FDA-Public Use
  Company Number: None

PATIENT
  Age: 89 Year
  Sex: Male

DRUGS (1)
  1. FLOMAX [Suspect]
     Dosage: 1 TABLET   QD    ORAL
     Route: 048
     Dates: start: 20030619, end: 20050606

REACTIONS (1)
  - IRIS DISORDER [None]
